FAERS Safety Report 6644876-6 (Version None)
Quarter: 2010Q1

REPORT INFORMATION
  Report Type: 
  Country: None (occurrence: None)
  Receive Date: 20100317
  Receipt Date: 20100309
  Transmission Date: 20100710
  Serious: Yes (Other)
  Sender: FDA-Public Use
  Company Number: 1000009316

PATIENT
  Age: 37 Year
  Sex: Male

DRUGS (1)
  1. LEXAPRO [Suspect]
     Indication: ANGER
     Dosage: 30 MG ((30 MG,  1 IN 1 D), ORAL
     Route: 048
     Dates: start: 20070701, end: 20090601

REACTIONS (9)
  - AFFECTIVE DISORDER [None]
  - AMNESIA [None]
  - CONDITION AGGRAVATED [None]
  - DISORIENTATION [None]
  - HEAD INJURY [None]
  - OVERDOSE [None]
  - PERSONALITY CHANGE [None]
  - PROMISCUITY [None]
  - ROAD TRAFFIC ACCIDENT [None]
